FAERS Safety Report 9428799 (Version 1)
Quarter: 2013Q3

REPORT INFORMATION
  Report Type: Report from Study
  Country: US (occurrence: US)
  Receive Date: 20130730
  Receipt Date: 20130730
  Transmission Date: 20140515
  Serious: No
  Sender: FDA-Public Use
  Company Number: US-ABBOTT-12P-163-1024550-00

PATIENT
  Sex: Male
  Weight: 72.64 kg

DRUGS (8)
  1. NIASPAN (COATED) [Suspect]
     Indication: HIGH DENSITY LIPOPROTEIN ABNORMAL
     Dates: start: 201208
  2. NIASPAN (COATED) [Suspect]
     Indication: BLOOD CHOLESTEROL ABNORMAL
     Dates: start: 2012
  3. NIASPAN (COATED) [Suspect]
     Indication: LOW DENSITY LIPOPROTEIN ABNORMAL
     Dates: start: 2012
  4. NIASPAN (COATED) [Suspect]
     Dates: start: 2012
  5. LIVALO [Concomitant]
     Indication: PRODUCT USED FOR UNKNOWN INDICATION
     Dates: start: 201208
  6. MICARDIS [Concomitant]
     Indication: PRODUCT USED FOR UNKNOWN INDICATION
  7. ANDROGEL [Concomitant]
     Indication: PRODUCT USED FOR UNKNOWN INDICATION
     Dates: start: 201209
  8. ASA [Concomitant]
     Indication: PRODUCT USED FOR UNKNOWN INDICATION
     Dosage: 30 MINS PRIOR TO NIASPAN

REACTIONS (6)
  - Thyroid function test abnormal [Not Recovered/Not Resolved]
  - Flushing [Recovered/Resolved]
  - Paraesthesia [Recovered/Resolved]
  - Pruritus [Recovered/Resolved]
  - Blood uric acid increased [Not Recovered/Not Resolved]
  - Pruritus [Recovered/Resolved]
